FAERS Safety Report 8895483 (Version 1)
Quarter: 2012Q4

REPORT INFORMATION
  Report Type: 
  Country: US (occurrence: US)
  Receive Date: 20121108
  Receipt Date: 20121108
  Transmission Date: 20130627
  Serious: No
  Sender: FDA-Public Use
  Company Number: US-ASTRAZENECA-2012SE84382

PATIENT
  Age: 50 Year
  Sex: Female
  Weight: 61.2 kg

DRUGS (3)
  1. PRILOSEC [Suspect]
     Route: 048
     Dates: start: 201111
  2. NEXIUM [Suspect]
     Route: 048
  3. SYNTHROID [Concomitant]

REACTIONS (3)
  - Dyspepsia [Not Recovered/Not Resolved]
  - Drug ineffective [Not Recovered/Not Resolved]
  - Intentional drug misuse [Unknown]
